FAERS Safety Report 11019193 (Version 2)
Quarter: 2015Q2

REPORT INFORMATION
  Report Type: Spontaneous
  Country: US (occurrence: US)
  Receive Date: 20150412
  Receipt Date: 20150525
  Transmission Date: 20150821
  Serious: Yes (Other)
  Sender: FDA-Public Use
  Company Number: US-JNJFOC-20110500245

PATIENT
  Age: 64 Year
  Sex: Male
  Weight: 84.82 kg

DRUGS (2)
  1. CIPROFLOXACIN. [Suspect]
     Active Substance: CIPROFLOXACIN
     Indication: SINUSITIS
     Route: 065
  2. LEVAQUIN [Suspect]
     Active Substance: LEVOFLOXACIN
     Indication: DIVERTICULITIS
     Route: 048
     Dates: start: 20090420, end: 20090423

REACTIONS (2)
  - Tendonitis [Recovering/Resolving]
  - Tendonitis [Unknown]

NARRATIVE: CASE EVENT DATE: 200904
